FAERS Safety Report 18193939 (Version 1)
Quarter: 2020Q3

REPORT INFORMATION
  Report Type: Spontaneous
  Country: US (occurrence: US)
  Receive Date: 20200825
  Receipt Date: 20200825
  Transmission Date: 20201103
  Serious: Yes (Hospitalization, Other)
  Sender: FDA-Public Use
  Company Number: US-GILEAD-2020-0491422

PATIENT
  Age: 66 Year
  Sex: Male
  Weight: 73.47 kg

DRUGS (27)
  1. SUSTIVA [Concomitant]
     Active Substance: EFAVIRENZ
  2. CHOLECALCIFEROL [Concomitant]
     Active Substance: CHOLECALCIFEROL
  3. VASCEPA [Concomitant]
     Active Substance: ICOSAPENT ETHYL
  4. BUPROPION. [Concomitant]
     Active Substance: BUPROPION
  5. SODIUM BICARBONATE. [Concomitant]
     Active Substance: SODIUM BICARBONATE
  6. XELODA [Concomitant]
     Active Substance: CAPECITABINE
  7. ASPIRIN (E.C.) [Concomitant]
     Active Substance: ASPIRIN
  8. ALPRAZOLAM. [Concomitant]
     Active Substance: ALPRAZOLAM
  9. BACTRIM DS [Concomitant]
     Active Substance: SULFAMETHOXAZOLE\TRIMETHOPRIM
  10. MYRBETRIC [Concomitant]
  11. SYNTHROID [Concomitant]
     Active Substance: LEVOTHYROXINE SODIUM
  12. PLAVIX [Concomitant]
     Active Substance: CLOPIDOGREL BISULFATE
  13. TAMSULOSIN [Concomitant]
     Active Substance: TAMSULOSIN
  14. TRAJENTA [Concomitant]
     Active Substance: LINAGLIPTIN
  15. TRUVADA [Suspect]
     Active Substance: EMTRICITABINE\TENOFOVIR DISOPROXIL FUMARATE
     Indication: HIV INFECTION
     Dosage: UNK
     Route: 048
     Dates: start: 200406, end: 201710
  16. COREG [Concomitant]
     Active Substance: CARVEDILOL
  17. KALETRA [Concomitant]
     Active Substance: LOPINAVIR\RITONAVIR
  18. DILT CD [Concomitant]
  19. FLOMAX [Concomitant]
     Active Substance: TAMSULOSIN HYDROCHLORIDE
  20. METFORMIN [Concomitant]
     Active Substance: METFORMIN HYDROCHLORIDE
  21. METOPROLOL. [Concomitant]
     Active Substance: METOPROLOL
  22. ATORVASTATIN [Concomitant]
     Active Substance: ATORVASTATIN
  23. FEXOFENADINE [Concomitant]
     Active Substance: FEXOFENADINE HYDROCHLORIDE
  24. OXYBUTYNIN. [Concomitant]
     Active Substance: OXYBUTYNIN CHLORIDE
  25. PAROXETINE. [Concomitant]
     Active Substance: PAROXETINE
  26. LASIX [Concomitant]
     Active Substance: FUROSEMIDE
  27. POTASSIUM CLORIDE 40 [Concomitant]
     Active Substance: POTASSIUM CHLORIDE

REACTIONS (4)
  - Acute kidney injury [Not Recovered/Not Resolved]
  - Chronic kidney disease [Not Recovered/Not Resolved]
  - Pain [Not Recovered/Not Resolved]
  - Emotional distress [Not Recovered/Not Resolved]

NARRATIVE: CASE EVENT DATE: 201406
